FAERS Safety Report 8172503-8 (Version None)
Quarter: 2012Q1

REPORT INFORMATION
  Report Type: 
  Country: None (occurrence: None)
  Receive Date: 20120227
  Receipt Date: 20120227
  Transmission Date: 20120608
  Serious: Yes (Death)
  Sender: FDA-Public Use
  Company Number: None

PATIENT
  Age: 49 Year
  Sex: Male
  Weight: 79 kg

DRUGS (4)
  1. DEPAKOTE [Concomitant]
  2. PHENYTOIN [Concomitant]
  3. ZOLOFT [Concomitant]
  4. LAMOTRIGINE [Suspect]
     Indication: CONVULSION
     Dosage: 50MG/DAY PO
     Route: 048
     Dates: end: 20110318

REACTIONS (8)
  - CONFUSIONAL STATE [None]
  - COAGULOPATHY [None]
  - JAUNDICE [None]
  - HYPOTENSION [None]
  - ACUTE RESPIRATORY DISTRESS SYNDROME [None]
  - RASH [None]
  - LIVER INJURY [None]
  - UNRESPONSIVE TO STIMULI [None]
